FAERS Safety Report 20635267 (Version 1)
Quarter: 2022Q1

REPORT INFORMATION
  Report Type: Spontaneous
  Country: BE (occurrence: BE)
  Receive Date: 20220325
  Receipt Date: 20220325
  Transmission Date: 20220423
  Serious: Yes (Hospitalization, Other)
  Sender: FDA-Public Use
  Company Number: BE-MSNLABS-2022MSNLIT00284

PATIENT

DRUGS (1)
  1. CAPECITABINE [Suspect]
     Active Substance: CAPECITABINE
     Indication: Axillary mass
     Route: 065

REACTIONS (2)
  - Autoimmune thyroiditis [Recovered/Resolved]
  - Leukoencephalopathy [Recovered/Resolved]
